FAERS Safety Report 12528066 (Version 2)
Quarter: 2020Q1

REPORT INFORMATION
  Report Type: Spontaneous
  Country: US (occurrence: US)
  Receive Date: 20160705
  Receipt Date: 20200319
  Transmission Date: 20200409
  Serious: No
  Sender: FDA-Public Use
  Company Number: US-PFIZER INC-2016317019

PATIENT
  Age: 80 Year
  Sex: Female
  Weight: 114 kg

DRUGS (23)
  1. MILNACIPRAN HCL [Concomitant]
     Active Substance: MILNACIPRAN HYDROCHLORIDE
     Dosage: 12.5 + 25 + 50 MG AS NEEDED
     Dates: start: 20160609
  2. VITAMIN D [Concomitant]
     Active Substance: VITAMIN D NOS
     Dosage: 1000 IU, DAILY
     Route: 048
  3. TRAMADOL. [Concomitant]
     Active Substance: TRAMADOL
     Indication: PAIN
     Dosage: 50 MG, AS NEEDED (TWICE DAILY AS NEEDED)
     Route: 048
     Dates: start: 20151013, end: 20160127
  4. TRAMADOL. [Concomitant]
     Active Substance: TRAMADOL
     Dosage: 50 MG, AS NEEDED (3 TIMES DAILY)
     Dates: start: 20160606
  5. ALPRAZOLAM. [Concomitant]
     Active Substance: ALPRAZOLAM
     Dosage: UNK, AS NEEDED
     Route: 048
  6. AMLODIPINE BESYLATE. [Concomitant]
     Active Substance: AMLODIPINE BESYLATE
     Dosage: 2.5 MG, DAILY (5 MG, 1/2 TABLET DAILY)
  7. ALENDRONATE SODIUM. [Concomitant]
     Active Substance: ALENDRONATE SODIUM
     Dosage: 70 MG, WEEKLY (1 TABLET WEEKLY ON AN EMPTY STOMACH)
     Dates: start: 20150421
  8. FLEXERIL [Concomitant]
     Active Substance: CYCLOBENZAPRINE HYDROCHLORIDE
     Dosage: 50 MG, 1X/DAY 100 MG, 1/2 TABLET AT NIGHT TIME
     Route: 048
  9. LOPRESSOR [Concomitant]
     Active Substance: METOPROLOL TARTRATE
     Dosage: 50 MG, 2X/DAY
     Route: 048
  10. NITROSTAT [Concomitant]
     Active Substance: NITROGLYCERIN
     Dosage: 0.4 MG, AS NEEDED (EVERY 5 MIN AS NEEDED, UP TO 3 PER EPISODE)
     Route: 060
  11. DICLOFENAC SODIUM. [Concomitant]
     Active Substance: DICLOFENAC SODIUM
     Indication: PAIN
     Dosage: 1.5 %, AS NEEDED (APPLY TO THE AFFECTED JOINTS (5-10 DROPS) BID AS NEEDED)
     Route: 062
     Dates: start: 20151222, end: 20160609
  12. LYRICA [Suspect]
     Active Substance: PREGABALIN
     Indication: FIBROMYALGIA
     Dosage: 100 MG, 2X/DAY
     Route: 048
     Dates: start: 20151007, end: 20160118
  13. TRAMADOL. [Concomitant]
     Active Substance: TRAMADOL
     Dosage: UNK, 2X/DAY
  14. LIPITOR [Concomitant]
     Active Substance: ATORVASTATIN CALCIUM
     Dosage: 20 MG, DAILY
     Route: 048
  15. CALCIUM 600 + D [Concomitant]
     Active Substance: CALCIUM\VITAMIN D
     Dosage: 1 DF, DAILY
  16. FOLIC ACID. [Concomitant]
     Active Substance: FOLIC ACID
     Dosage: 1 MG, DAILY
     Route: 048
  17. KETOPROFEN. [Concomitant]
     Active Substance: KETOPROFEN
     Dosage: UNK, AS NEEDED
  18. LASIX [Concomitant]
     Active Substance: FUROSEMIDE
     Dosage: 20 MG, DAILY
     Route: 048
  19. ACETAMINOPHEN. [Concomitant]
     Active Substance: ACETAMINOPHEN
     Dosage: UNK, AS NEEDED
  20. FISH OIL [Concomitant]
     Active Substance: FISH OIL
     Dosage: 1000 MG, 2X/DAY (WITH A MEAL)
     Route: 048
  21. LYRICA [Suspect]
     Active Substance: PREGABALIN
     Indication: NEUROPATHY PERIPHERAL
     Dosage: 100 MG, 2X/DAY
     Route: 048
     Dates: start: 20160119
  22. VOLTAREN [Concomitant]
     Active Substance: DICLOFENAC SODIUM
     Indication: ARTHRALGIA
     Dosage: AS NEEDED (1 % 1 INCH TWICE DAILY)
     Dates: start: 20151203
  23. ASPIRIN. [Concomitant]
     Active Substance: ASPIRIN
     Dosage: 81 MG, DAILY
     Route: 048

REACTIONS (2)
  - Hyperaesthesia [Recovering/Resolving]
  - Peripheral swelling [Unknown]
